FAERS Safety Report 4356010-6 (Version None)
Quarter: 2004Q2

REPORT INFORMATION
  Report Type: 
  Country: None (occurrence: None)
  Receive Date: 20040507
  Receipt Date: 20040507
  Transmission Date: 20050107
  Serious: Yes (Hospitalization)
  Sender: FDA-Public Use
  Company Number: None

PATIENT
  Age: 61 Year
  Sex: Male
  Weight: 113.7 kg

DRUGS (5)
  1. AMLODIPINE [Suspect]
  2. LEVOTHYROXINE SODIUM [Suspect]
  3. AMLODIPINE [Suspect]
  4. FUROSEMIDE [Suspect]
  5. VENLAFAXINE HCL [Suspect]

REACTIONS (1)
  - CONSTIPATION [None]
